FAERS Safety Report 24061174 (Version 1)
Quarter: 2024Q3

REPORT INFORMATION
  Report Type: Spontaneous
  Country: US (occurrence: US)
  Receive Date: 20240708
  Receipt Date: 20240708
  Transmission Date: 20241016
  Serious: No
  Sender: PFIZER
  Company Number: US-PFIZER INC-202400208013

PATIENT
  Age: 62 Year
  Sex: Female

DRUGS (5)
  1. XELJANZ [Suspect]
     Active Substance: TOFACITINIB CITRATE
     Dosage: 5 MG 1 TABLET TWICE A DAY
     Dates: start: 202403
  2. PFIZERPEN [Concomitant]
     Active Substance: PENICILLIN G POTASSIUM
     Dosage: 20 MM UNIT VIAL
  3. ZOLOFT [Concomitant]
     Active Substance: SERTRALINE HYDROCHLORIDE
     Dosage: UNK
  4. FAMOTIDINE [Concomitant]
     Active Substance: FAMOTIDINE
     Dosage: UNK
  5. SIMETHICONE (DIMETHICONE) [Concomitant]
     Active Substance: DIMETHICONE
     Dosage: UNK

REACTIONS (3)
  - Post-acute COVID-19 syndrome [Not Recovered/Not Resolved]
  - Dyspnoea [Not Recovered/Not Resolved]
  - COVID-19 [Not Recovered/Not Resolved]
